FAERS Safety Report 5265874-3 (Version None)
Quarter: 2007Q1

REPORT INFORMATION
  Report Type: 
  Country: None (occurrence: None)
  Receive Date: 20070312
  Receipt Date: 20070312
  Transmission Date: 20070707
  Serious: Yes (Hospitalization)
  Sender: FDA-Public Use
  Company Number: None

PATIENT
  Age: 39 Year
  Sex: Female
  Weight: 86.1834 kg

DRUGS (1)
  1. PENTASA [Suspect]
     Indication: COLITIS ULCERATIVE
     Dosage: 1500 MG DAILY PO
     Route: 048
     Dates: start: 20060410, end: 20060908

REACTIONS (3)
  - ANAEMIA [None]
  - INFLAMMATION [None]
  - RENAL IMPAIRMENT [None]
